FAERS Safety Report 20162184 (Version 2)
Quarter: 2022Q1

REPORT INFORMATION
  Report Type: Report from Study
  Country: US (occurrence: US)
  Receive Date: 20211208
  Receipt Date: 20220127
  Transmission Date: 20220423
  Serious: Yes (Hospitalization)
  Sender: FDA-Public Use
  Company Number: US-NOVARTISPH-NVSC2021US278562

PATIENT
  Age: 12 Year
  Sex: Female
  Weight: 37.5 kg

DRUGS (28)
  1. TRAMETINIB [Suspect]
     Active Substance: TRAMETINIB
     Indication: Glioma
     Dosage: 2.5 MG DAILY
     Route: 048
     Dates: start: 20210921
  2. AFINITOR [Suspect]
     Active Substance: EVEROLIMUS
     Indication: Glioma
     Dosage: 1 MG DAILY
     Route: 048
     Dates: start: 20210921
  3. COMPAZINE [Concomitant]
     Active Substance: PROCHLORPERAZINE MALEATE
     Indication: Premedication
     Dosage: 0.5 MG, PRN (Q6HRS)
     Route: 048
     Dates: start: 20211009, end: 20211014
  4. DILAUDID [Concomitant]
     Active Substance: HYDROMORPHONE HYDROCHLORIDE
     Indication: Pain
     Dosage: 4 MG, PRN (Q4HRS)
     Route: 048
     Dates: start: 20210728, end: 20211019
  5. DILAUDID [Concomitant]
     Active Substance: HYDROMORPHONE HYDROCHLORIDE
     Dosage: 6 MG, PRN (Q6HRS)
     Route: 048
     Dates: start: 20211019
  6. ACETAMINOPHEN [Concomitant]
     Active Substance: ACETAMINOPHEN
     Indication: Pain
     Dosage: 325 MG, PRN (Q6HRS)
     Route: 048
     Dates: start: 20190122
  7. MIRALAX [Concomitant]
     Active Substance: POLYETHYLENE GLYCOL 3350
     Indication: Constipation
     Dosage: 4 MG, PRN (Q6HRS)
     Route: 048
     Dates: start: 20210729
  8. AQUAPHOR [Concomitant]
     Active Substance: PETROLATUM
     Indication: Rectal fissure
     Dosage: 4 G, PRN
     Route: 061
     Dates: start: 20210729
  9. DOLOPHINE [Concomitant]
     Active Substance: METHADONE HYDROCHLORIDE
     Indication: Product used for unknown indication
     Dosage: 2.5 MG TTD
     Route: 048
     Dates: start: 20210729
  10. ONDANSETRON [Concomitant]
     Active Substance: ONDANSETRON
     Indication: Nausea
     Dosage: 4 MG, PRN
     Route: 065
     Dates: start: 20210730
  11. ONDANSETRON [Concomitant]
     Active Substance: ONDANSETRON
     Indication: Vomiting
  12. ATIVAN [Concomitant]
     Active Substance: LORAZEPAM
     Indication: Nausea
     Dosage: 1 MG, PRN (Q6HRS)
     Route: 048
     Dates: start: 20210730
  13. ATIVAN [Concomitant]
     Active Substance: LORAZEPAM
     Indication: Vomiting
  14. NEUROTIN [Concomitant]
     Active Substance: GABAPENTIN
     Indication: Product used for unknown indication
     Dosage: 4 ML TTD
     Route: 048
     Dates: start: 20210804
  15. DEXAMETHASONE [Concomitant]
     Active Substance: DEXAMETHASONE
     Indication: Product used for unknown indication
     Dosage: 2 MG, BID
     Route: 048
     Dates: start: 20210814, end: 20211014
  16. DEXAMETHASONE [Concomitant]
     Active Substance: DEXAMETHASONE
     Dosage: 1.5 MG AM, 0.5 MG PM
     Route: 048
     Dates: start: 20211014, end: 20211102
  17. DEXAMETHASONE [Concomitant]
     Active Substance: DEXAMETHASONE
     Dosage: 1 MG, BID
     Route: 048
     Dates: start: 20211102
  18. NARCAN [Concomitant]
     Active Substance: NALOXONE HYDROCHLORIDE
     Indication: Prophylaxis
     Dosage: UNK, PRN
     Route: 065
     Dates: start: 20210826
  19. BENADRYL [Concomitant]
     Active Substance: DIPHENHYDRAMINE HYDROCHLORIDE
     Indication: Migraine
     Dosage: 25 MG, PRN (Q6HRS)
     Route: 048
     Dates: start: 20211009
  20. DULOXETINE [Concomitant]
     Active Substance: DULOXETINE
     Indication: Product used for unknown indication
     Dosage: 25 MG, NIGHTLY (30 DOSES)
     Route: 048
     Dates: start: 20211009, end: 20211010
  21. BACTRIM [Concomitant]
     Active Substance: SULFAMETHOXAZOLE\TRIMETHOPRIM
     Indication: Product used for unknown indication
     Dosage: 400-80 MG BID (ONLY SAT AND SUN)
     Route: 048
     Dates: start: 20210928
  22. CRESTOR [Concomitant]
     Active Substance: ROSUVASTATIN CALCIUM
     Indication: Blood cholesterol increased
     Dosage: 5 MG DAILY
     Route: 048
     Dates: start: 20211019
  23. VITAMIN D3 [Concomitant]
     Active Substance: CHOLECALCIFEROL
     Indication: Product used for unknown indication
     Dosage: 2000 UNIT DAILY
     Route: 048
     Dates: start: 20211022
  24. BACTROBAN [Concomitant]
     Active Substance: MUPIROCIN\MUPIROCIN CALCIUM
     Indication: Product used for unknown indication
     Dosage: 2 %, BID
     Route: 048
     Dates: start: 20211005
  25. COLACE [Concomitant]
     Active Substance: DOCUSATE SODIUM
     Indication: Product used for unknown indication
     Dosage: 100 MG DAILY
     Route: 048
     Dates: start: 20211005
  26. PEPCID [Concomitant]
     Active Substance: FAMOTIDINE
     Indication: Product used for unknown indication
     Dosage: 20 MG, BID
     Route: 048
     Dates: start: 20211130
  27. BIOTINE [Concomitant]
     Indication: Product used for unknown indication
     Dosage: 10 MG, BID
     Route: 048
     Dates: start: 20211213
  28. HYDROCORTISONE [Concomitant]
     Active Substance: HYDROCORTISONE
     Indication: Product used for unknown indication
     Dosage: 2.5 %, PRN (Q6HRS)
     Route: 061
     Dates: start: 20220113

REACTIONS (3)
  - Haemorrhage intracranial [Recovering/Resolving]
  - Headache [Recovering/Resolving]
  - Arthralgia [Recovering/Resolving]

NARRATIVE: CASE EVENT DATE: 20211128
